FAERS Safety Report 24863233 (Version 1)
Quarter: 2025Q1

REPORT INFORMATION
  Report Type: Spontaneous
  Country: US (occurrence: US)
  Receive Date: 20250120
  Receipt Date: 20250120
  Transmission Date: 20250409
  Serious: Yes (Other)
  Sender: ORGANON
  Company Number: US-ORGANON-O2501USA001602

PATIENT
  Sex: Female

DRUGS (2)
  1. NEXPLANON [Suspect]
     Active Substance: ETONOGESTREL
     Route: 059
     Dates: start: 20220408, end: 20241113
  2. LAMOTRIGINE [Suspect]
     Active Substance: LAMOTRIGINE
     Dosage: 300 MILLIGRAM, QD
     Route: 065

REACTIONS (3)
  - Pregnancy with implant contraceptive [Not Recovered/Not Resolved]
  - Unintended pregnancy [Not Recovered/Not Resolved]
  - Labelled drug-drug interaction issue [Unknown]

NARRATIVE: CASE EVENT DATE: 20240710
